FAERS Safety Report 7801817-3 (Version None)
Quarter: 2011Q4

REPORT INFORMATION
  Report Type: 
  Country: None (occurrence: None)
  Receive Date: 20111007
  Receipt Date: 20110929
  Transmission Date: 20120403
  Serious: Yes (Other)
  Sender: FDA-Public Use
  Company Number: IE-PFIZER INC-2011232016

PATIENT
  Age: 85 Year
  Sex: Male

DRUGS (1)
  1. REVATIO [Suspect]

REACTIONS (3)
  - DYSARTHRIA [None]
  - DROOLING [None]
  - CEREBRAL ARTERY EMBOLISM [None]
